FAERS Safety Report 25110657 (Version 1)
Quarter: 2025Q1

REPORT INFORMATION
  Report Type: Spontaneous
  Country: US (occurrence: US)
  Receive Date: 20250324
  Receipt Date: 20250324
  Transmission Date: 20250409
  Serious: No
  Sender: ROCHE
  Company Number: US-ROCHE-10000233241

PATIENT
  Sex: Male
  Weight: 74.38 kg

DRUGS (1)
  1. XOLAIR PFS [Suspect]
     Active Substance: OMALIZUMAB
     Indication: Food allergy
     Dosage: DOSE IS 450MG EVERY 2 WEEKS IN THE FORM OF (1) 150MG AI AND (1) 300MG AI
     Route: 058
     Dates: start: 202501

REACTIONS (5)
  - Accidental underdose [Unknown]
  - Product complaint [Unknown]
  - Accidental exposure to product [Unknown]
  - Wrong technique in product usage process [Unknown]
  - No adverse event [Unknown]

NARRATIVE: CASE EVENT DATE: 20250312
